FAERS Safety Report 7490679-2 (Version None)
Quarter: 2011Q2

REPORT INFORMATION
  Report Type: 
  Country: None (occurrence: None)
  Receive Date: 20110519
  Receipt Date: 20110505
  Transmission Date: 20111010
  Serious: Yes (Death, Life-Threatening, Hospitalization, Other)
  Sender: FDA-Public Use
  Company Number: US-CELGENEUS-163-21880-11032686

PATIENT
  Sex: Female
  Weight: 131.66 kg

DRUGS (7)
  1. LORTAB [Concomitant]
     Dosage: 10 MILLIGRAM
     Route: 065
     Dates: start: 19970101
  2. TOVIAZ [Concomitant]
     Dosage: 81 MILLIGRAM
     Route: 065
     Dates: start: 20100101
  3. XANAX [Concomitant]
     Indication: ANXIETY
     Dosage: 10 MILLIGRAM
     Route: 065
     Dates: start: 20040101
  4. REVLIMID [Suspect]
     Dosage: 10 MILLIGRAM
     Route: 048
     Dates: start: 20110224, end: 20110307
  5. ELMIRON [Concomitant]
     Dosage: 100 MILLIGRAM
     Route: 065
     Dates: start: 20100101
  6. PREMPRO [Concomitant]
     Dosage: 2.5 MILLIGRAM
     Route: 065
     Dates: start: 20100101
  7. DACOGEN [Concomitant]
     Route: 065
     Dates: start: 20110301

REACTIONS (4)
  - GASTROINTESTINAL HAEMORRHAGE [None]
  - MOUTH HAEMORRHAGE [None]
  - ACUTE LEUKAEMIA [None]
  - MYELODYSPLASTIC SYNDROME TRANSFORMATION [None]
